FAERS Safety Report 26183682 (Version 1)
Quarter: 2025Q4

REPORT INFORMATION
  Report Type: Spontaneous
  Country: US (occurrence: US)
  Receive Date: 20251221
  Receipt Date: 20251221
  Transmission Date: 20260117
  Serious: No
  Sender: AMGEN
  Company Number: US-AMGEN-USASP2025250663

PATIENT
  Age: 63 Year
  Sex: Female

DRUGS (1)
  1. MVASI [Suspect]
     Active Substance: BEVACIZUMAB-AWWB
     Indication: Breast cancer
     Dosage: UNK (DOSE ORDERED: 1600 MILLIGRAM, DOSE REQUESTED: 4 X 400 MILLIGRAM)
     Route: 065

REACTIONS (1)
  - Platelet count abnormal [Unknown]
